FAERS Safety Report 19489280 (Version 1)
Quarter: 2021Q3

REPORT INFORMATION
  Report Type: Spontaneous
  Country: US (occurrence: US)
  Receive Date: 20210703
  Receipt Date: 20210703
  Transmission Date: 20211014
  Serious: Yes (Life-Threatening, Other)
  Sender: FDA-Public Use
  Company Number: NVSC2021US148615

PATIENT
  Sex: Female

DRUGS (2)
  1. BETAPACE [Concomitant]
     Active Substance: SOTALOL HYDROCHLORIDE
     Indication: ATRIAL TACHYCARDIA
     Dosage: 0.5 DF, BID
     Route: 065
  2. VIVELLE?DOT [Suspect]
     Active Substance: ESTRADIOL
     Indication: PRODUCT USED FOR UNKNOWN INDICATION
     Dosage: 0.1 MG, BIW
     Route: 062

REACTIONS (11)
  - Mood swings [Not Recovered/Not Resolved]
  - Product adhesion issue [Unknown]
  - Insomnia [Not Recovered/Not Resolved]
  - Depression [Not Recovered/Not Resolved]
  - Arrhythmia [Unknown]
  - Product physical issue [Unknown]
  - Oestrogen deficiency [Unknown]
  - Anxiety [Not Recovered/Not Resolved]
  - Hormone level abnormal [Unknown]
  - Feeling abnormal [Not Recovered/Not Resolved]
  - Cardiac disorder [Unknown]
